FAERS Safety Report 15310514 (Version 1)
Quarter: 2018Q3

REPORT INFORMATION
  Report Type: Spontaneous
  Country: US (occurrence: US)
  Receive Date: 20180813
  Receipt Date: 20180813
  Transmission Date: 20181010
  Serious: Yes (Hospitalization)
  Sender: FDA-Public Use
  Company Number: None

PATIENT
  Age: 76 Year
  Sex: Male

DRUGS (13)
  1. POT CHLORIDE SOL [Concomitant]
     Dates: start: 20160627
  2. ESBRIET [Suspect]
     Active Substance: PIRFENIDONE
     Indication: IDIOPATHIC PULMONARY FIBROSIS
     Route: 048
     Dates: start: 20160629
  3. LOSARTAN POT [Concomitant]
     Active Substance: LOSARTAN POTASSIUM
     Dates: start: 20160627
  4. SILDENAFIL. [Concomitant]
     Active Substance: SILDENAFIL
     Dates: start: 20180806
  5. OMEPRAZOLE. [Concomitant]
     Active Substance: OMEPRAZOLE
     Dates: start: 20170929
  6. METOLAZONE. [Concomitant]
     Active Substance: METOLAZONE
     Dates: start: 20160627
  7. PRADAXA [Concomitant]
     Active Substance: DABIGATRAN ETEXILATE MESYLATE
     Dates: start: 20160627
  8. FUROSEMIDE. [Concomitant]
     Active Substance: FUROSEMIDE
     Dates: start: 20160627
  9. ATORVASTATIN [Concomitant]
     Active Substance: ATORVASTATIN
     Dates: start: 20180716
  10. AMLODIPINE [Concomitant]
     Active Substance: AMLODIPINE BESYLATE
     Dates: start: 20160627
  11. METOLAZONE. [Concomitant]
     Active Substance: METOLAZONE
     Dates: start: 20171017
  12. BUMETANIDE. [Concomitant]
     Active Substance: BUMETANIDE
     Dates: start: 20180801
  13. ELIQUIS [Concomitant]
     Active Substance: APIXABAN
     Dates: start: 20180727

REACTIONS (1)
  - Idiopathic pulmonary fibrosis [None]

NARRATIVE: CASE EVENT DATE: 20180801
